FAERS Safety Report 8982880 (Version 1)
Quarter: 2012Q4

REPORT INFORMATION
  Report Type: 
  Country: DE (occurrence: DE)
  Receive Date: 20121224
  Receipt Date: 20121224
  Transmission Date: 20130627
  Serious: Yes (Hospitalization)
  Sender: FDA-Public Use
  Company Number: DE-PFIZER INC-2012317604

PATIENT
  Age: 58 Year
  Sex: Male
  Weight: 64 kg

DRUGS (2)
  1. SULFASALAZINE [Suspect]
     Indication: INFLAMMATORY BOWEL DISEASE
     Dosage: 2 DF, 3x/day
     Route: 048
     Dates: end: 201207
  2. MESALAZINE [Suspect]
     Indication: INFLAMMATORY BOWEL DISEASE
     Dosage: 1 DF, 1x/day
     Route: 054
     Dates: start: 201207

REACTIONS (1)
  - Alveolitis [Not Recovered/Not Resolved]
